FAERS Safety Report 11079186 (Version 1)
Quarter: 2015Q2

REPORT INFORMATION
  Report Type: Spontaneous
  Country: DE (occurrence: DE)
  Receive Date: 20150430
  Receipt Date: 20150430
  Transmission Date: 20150821
  Serious: Yes (Hospitalization)
  Sender: FDA-Public Use
  Company Number: DE-PFIZER INC-2015141702

PATIENT
  Age: 53 Year
  Sex: Female

DRUGS (8)
  1. NITOMAN [Interacting]
     Active Substance: TETRABENAZINE
     Dosage: 75 MG, 1X/DAY
     Route: 048
     Dates: start: 20100305
  2. FLUANXOL [Interacting]
     Active Substance: FLUPENTIXOL
     Dosage: 2 MG, 1X/DAY
     Route: 048
     Dates: start: 20081103, end: 20090603
  3. KLIMADYNON [Concomitant]
     Dosage: 6.5 MG, 1X/DAY
     Route: 048
  4. ZOLPIDEM [Concomitant]
     Active Substance: ZOLPIDEM\ZOLPIDEM TARTRATE
     Dosage: 10 MG, 1X/DAY
     Route: 048
     Dates: start: 20090212
  5. HYPNOREX [Concomitant]
     Active Substance: LITHIUM CARBONATE
     Dosage: 800 MG, 1X/DAY
     Route: 048
     Dates: start: 20090212
  6. TREVILOR RETARD [Suspect]
     Active Substance: VENLAFAXINE HYDROCHLORIDE
     Dosage: 150 MG, 1X/DAY
     Route: 048
     Dates: start: 20021115
  7. NITOMAN [Interacting]
     Active Substance: TETRABENAZINE
     Dosage: 150 MG, 1X/DAY
     Route: 048
     Dates: start: 20091127, end: 20100304
  8. TIAPRIDEX [Concomitant]
     Active Substance: TIAPRIDE
     Dosage: 600 MG, 1X/DAY
     Route: 048
     Dates: start: 20090720, end: 20100113

REACTIONS (6)
  - Dyskinesia [Unknown]
  - Drug interaction [Unknown]
  - Akathisia [Unknown]
  - Fatigue [Unknown]
  - Tremor [Recovering/Resolving]
  - Listless [Unknown]

NARRATIVE: CASE EVENT DATE: 2010
